FAERS Safety Report 5263046-X (Version None)
Quarter: 2007Q1

REPORT INFORMATION
  Report Type: 
  Country: None (occurrence: None)
  Receive Date: 20070312
  Receipt Date: 20070302
  Transmission Date: 20070707
  Serious: No
  Sender: FDA-Public Use
  Company Number: US-ABBOTT-07P-163-0359785-00

PATIENT
  Age: 75 Year
  Sex: Female

DRUGS (4)
  1. DIVALPROEX SODIUM [Suspect]
     Indication: DRUG USE FOR UNKNOWN INDICATION
     Dosage: NOT REPORTED
  2. QUETIAPINE FUMARATE [Concomitant]
     Indication: DRUG USE FOR UNKNOWN INDICATION
     Dosage: NOT REPORTED
  3. QUETIAPINE FUMARATE [Concomitant]
     Dosage: 100 MG IN AM, 100 MG IN 100MG IN AM, 100MG AFTERNOON, 400MG QHS
  4. TRAZODONE HCL [Concomitant]
     Indication: SEDATIVE THERAPY
     Dosage: NOT REPORTED

REACTIONS (1)
  - SEDATION [None]
